FAERS Safety Report 6425823-9 (Version None)
Quarter: 2009Q4

REPORT INFORMATION
  Report Type: 
  Country: None (occurrence: None)
  Receive Date: 20091103
  Receipt Date: 20081226
  Transmission Date: 20100525
  Serious: No
  Sender: FDA-Public Use
  Company Number: US-ABBOTT-08P-163-0494857-00

PATIENT
  Age: 56 Year
  Sex: Female
  Weight: 68.1 kg

DRUGS (1)
  1. BIAXIN [Suspect]
     Indication: INFECTION
     Dosage: NOT REPORTED
     Dates: start: 19960101, end: 19960101

REACTIONS (1)
  - SWELLING FACE [None]
